FAERS Safety Report 5300747-9 (Version None)
Quarter: 2007Q2

REPORT INFORMATION
  Report Type: 
  Country: None (occurrence: None)
  Receive Date: 20070418
  Receipt Date: 20070312
  Transmission Date: 20071010
  Serious: Yes (Other)
  Sender: FDA-Public Use
  Company Number: US-SANOFI-SYNTHELABO-A03200605583

PATIENT
  Sex: Female

DRUGS (4)
  1. AMBIEN [Suspect]
     Indication: INSOMNIA
     Route: 048
     Dates: start: 20010101, end: 20060913
  2. SEROQUEL [Concomitant]
     Dosage: UNK
     Route: 065
  3. HALOPERIDOL [Concomitant]
     Dosage: UNK
     Route: 065
  4. ALCOHOL [Concomitant]
     Dosage: UNK
     Route: 065
     Dates: start: 20060822

REACTIONS (5)
  - AMNESIA [None]
  - EATING DISORDER [None]
  - LOSS OF CONSCIOUSNESS [None]
  - ROAD TRAFFIC ACCIDENT [None]
  - SLEEP WALKING [None]
